FAERS Safety Report 9378331 (Version 1)
Quarter: 2013Q3

REPORT INFORMATION
  Report Type: Spontaneous
  Country: FR (occurrence: FR)
  Receive Date: 20130701
  Receipt Date: 20130701
  Transmission Date: 20140515
  Serious: Yes (Hospitalization)
  Sender: FDA-Public Use
  Company Number: FR-TEVA-416211ISR

PATIENT
  Age: 83 Year
  Sex: Female

DRUGS (10)
  1. FUROSEMIDE TEVA 40 MG SCORED TABLET [Suspect]
     Dosage: 40 MILLIGRAM DAILY; 10 TABLETS TAKEN; TABLETS WITH ^F40^ LOGO
  2. VERAPAMIL 120 MG [Concomitant]
  3. PERINDOPRINE 4 [Concomitant]
  4. ESOMEPRAZOLE 20 [Concomitant]
  5. DIFFU-K [Concomitant]
  6. IDEOS [Concomitant]
  7. DOLIPRANE [Concomitant]
  8. SEROPLEX 5 [Concomitant]
  9. ALLOPURINOL 100 [Concomitant]
  10. COLCHIMAX 1 [Concomitant]

REACTIONS (7)
  - Fall [Recovered/Resolved]
  - Acute pulmonary oedema [Recovered/Resolved]
  - Angina unstable [Recovering/Resolving]
  - Respiratory distress [Unknown]
  - Respiratory acidosis [Unknown]
  - Fatigue [Unknown]
  - Dilatation ventricular [None]
